FAERS Safety Report 13298965 (Version 1)
Quarter: 2017Q1

REPORT INFORMATION
  Report Type: Spontaneous
  Country: US (occurrence: US)
  Receive Date: 20170306
  Receipt Date: 20170306
  Transmission Date: 20170428
  Serious: Yes (Hospitalization, Other)
  Sender: FDA-Public Use
  Company Number: US-ABBVIE-17K-163-1892387-00

PATIENT
  Age: 70 Year
  Sex: Female

DRUGS (2)
  1. HUMIRA [Suspect]
     Active Substance: ADALIMUMAB
     Indication: RHEUMATOID ARTHRITIS
     Route: 058
     Dates: end: 201701
  2. HUMIRA [Suspect]
     Active Substance: ADALIMUMAB
     Indication: PSORIASIS

REACTIONS (5)
  - Musculoskeletal pain [Not Recovered/Not Resolved]
  - Pulmonary mass [Unknown]
  - Neck pain [Not Recovered/Not Resolved]
  - Pleural effusion [Recovering/Resolving]
  - Histoplasmosis [Recovering/Resolving]

NARRATIVE: CASE EVENT DATE: 2017
